FAERS Safety Report 21358614 (Version 1)
Quarter: 2022Q3

REPORT INFORMATION
  Report Type: Spontaneous
  Country: DE (occurrence: DE)
  Receive Date: 20220921
  Receipt Date: 20220921
  Transmission Date: 20221027
  Serious: Yes (Hospitalization)
  Sender: FDA-Public Use
  Company Number: DE-ADRED-05697-01

PATIENT
  Age: 56 Year
  Sex: Female
  Weight: 100.2 kg

DRUGS (2)
  1. MIRTAZAPINE [Suspect]
     Active Substance: MIRTAZAPINE
     Indication: Product used for unknown indication
     Dosage: 30 MILLIGRAM, TABLETS
     Route: 048
  2. ARIPIPRAZOLE [Concomitant]
     Active Substance: ARIPIPRAZOLE
     Indication: Product used for unknown indication
     Dosage: 10 MILLIGRAM, ORODISPERSIBLE TABLETS
     Route: 048

REACTIONS (4)
  - Depressed mood [Unknown]
  - Condition aggravated [Unknown]
  - Panic reaction [Unknown]
  - Anxiety [Unknown]
